FAERS Safety Report 9227984 (Version 1)
Quarter: 2013Q2

REPORT INFORMATION
  Report Type: Spontaneous
  Country: US (occurrence: None)
  Receive Date: 20130411
  Receipt Date: 20130411
  Transmission Date: 20140414
  Serious: Yes (Other)
  Sender: FDA-Public Use
  Company Number: None

PATIENT
  Age: 16 Year
  Sex: Female

DRUGS (2)
  1. DEPAKOTE [Suspect]
     Indication: EPILEPSY
     Dosage: 2 QHS PO
     Route: 048
     Dates: start: 20120918
  2. DEPAKOTE [Suspect]
     Indication: DEPRESSION
     Dosage: 2 QHS PO
     Route: 048
     Dates: start: 20120918

REACTIONS (1)
  - Depression [None]
